FAERS Safety Report 21773639 (Version 1)
Quarter: 2022Q4

REPORT INFORMATION
  Report Type: Spontaneous
  Country: DE (occurrence: DE)
  Receive Date: 20221223
  Receipt Date: 20221223
  Transmission Date: 20230112
  Serious: Yes (Life-Threatening, Hospitalization, Other)
  Sender: FDA-Public Use
  Company Number: DE-BRACCO-2022DE05358

PATIENT
  Age: 40 Year
  Sex: Male

DRUGS (20)
  1. SULFUR HEXAFLUORIDE [Suspect]
     Active Substance: SULFUR HEXAFLUORIDE
     Indication: Echocardiogram
     Dosage: 0.5 ML, SINGLE
     Route: 042
     Dates: start: 20221130, end: 20221130
  2. SULFUR HEXAFLUORIDE [Suspect]
     Active Substance: SULFUR HEXAFLUORIDE
     Indication: Echocardiogram
     Dosage: 0.5 ML, SINGLE
     Route: 042
     Dates: start: 20221130, end: 20221130
  3. SULFUR HEXAFLUORIDE [Suspect]
     Active Substance: SULFUR HEXAFLUORIDE
     Indication: Echocardiogram
     Dosage: 0.5 ML, SINGLE
     Route: 042
     Dates: start: 20221130, end: 20221130
  4. SULFUR HEXAFLUORIDE [Suspect]
     Active Substance: SULFUR HEXAFLUORIDE
     Indication: Echocardiogram
     Dosage: 0.5 ML, SINGLE
     Route: 042
     Dates: start: 20221206, end: 20221206
  5. SULFUR HEXAFLUORIDE [Suspect]
     Active Substance: SULFUR HEXAFLUORIDE
     Indication: Echocardiogram
     Dosage: 0.5 ML, SINGLE
     Route: 042
     Dates: start: 20221206, end: 20221206
  6. SULFUR HEXAFLUORIDE [Suspect]
     Active Substance: SULFUR HEXAFLUORIDE
     Indication: Echocardiogram
     Dosage: 0.5 ML, SINGLE
     Route: 042
     Dates: start: 20221206, end: 20221206
  7. ASPIRIN [Concomitant]
     Active Substance: ASPIRIN
     Indication: Coronary artery disease
     Dosage: UNK MG
  8. PRASUGREL [Concomitant]
     Active Substance: PRASUGREL
     Indication: Coronary artery disease
     Dosage: UNK MG
  9. ACETAMINOPHEN\CAFFEINE\PROPYPHENAZONE [Concomitant]
     Active Substance: ACETAMINOPHEN\CAFFEINE\PROPYPHENAZONE
     Indication: Back pain
  10. PANTOZOL [Concomitant]
     Active Substance: PANTOPRAZOLE SODIUM
     Dosage: UNK MG
  11. DAPAGLIFLOZIN [Concomitant]
     Active Substance: DAPAGLIFLOZIN
     Indication: Ejection fraction
  12. DAPAGLIFLOZIN [Concomitant]
     Active Substance: DAPAGLIFLOZIN
     Indication: Cardiac failure
  13. EPLERENONE [Concomitant]
     Active Substance: EPLERENONE
     Indication: Ejection fraction
     Dosage: 25 UNK
  14. EPLERENONE [Concomitant]
     Active Substance: EPLERENONE
     Indication: Cardiac failure
  15. METOPROLOL [Concomitant]
     Active Substance: METOPROLOL
     Indication: Coronary artery disease
  16. ENTRESTO [Concomitant]
     Active Substance: SACUBITRIL\VALSARTAN
     Indication: Ejection fraction
  17. ENTRESTO [Concomitant]
     Active Substance: SACUBITRIL\VALSARTAN
     Indication: Cardiac failure
  18. ATORVASTATIN [Concomitant]
     Active Substance: ATORVASTATIN
     Indication: Coronary artery disease
  19. FUROSEMIDE [Concomitant]
     Active Substance: FUROSEMIDE
     Indication: Ejection fraction
  20. FUROSEMIDE [Concomitant]
     Active Substance: FUROSEMIDE
     Indication: Cardiac failure

REACTIONS (6)
  - Myocardial infarction [Recovered/Resolved]
  - Cardiogenic shock [Recovered/Resolved]
  - Vascular stent thrombosis [Recovered/Resolved]
  - Myocardial infarction [Recovered/Resolved]
  - Cardiogenic shock [Recovered/Resolved]
  - Vascular stent thrombosis [Recovered/Resolved]

NARRATIVE: CASE EVENT DATE: 20221130
